FAERS Safety Report 4910072-3 (Version None)
Quarter: 2006Q1

REPORT INFORMATION
  Report Type: 
  Country: None (occurrence: None)
  Receive Date: 20060208
  Receipt Date: 20060119
  Transmission Date: 20060701
  Serious: Yes (Hospitalization)
  Sender: FDA-Public Use
  Company Number: 221671

PATIENT
  Age: 83 Year
  Sex: Female

DRUGS (6)
  1. AVASTIN [Suspect]
     Indication: COLORECTAL CANCER
     Dosage: 405 MG, INTRAVENOUS
     Route: 042
     Dates: start: 20051004, end: 20051228
  2. CAPECITABINE (CAPECITABINE) [Suspect]
     Indication: COLORECTAL CANCER
     Dosage: 1500 MG, ORAL
     Route: 048
     Dates: start: 20051004, end: 20051228
  3. OXALIPLATIN(OXALIPLATIN) [Suspect]
     Indication: COLORECTAL CANCER
     Dosage: 250 MG, INTRAVENOUS
     Route: 042
     Dates: start: 20051004, end: 20051228
  4. INSULIN [Concomitant]
  5. ATENOLOL [Concomitant]
  6. LIPITOR [Concomitant]

REACTIONS (4)
  - ERYTHEMA [None]
  - OEDEMA PERIPHERAL [None]
  - PAIN IN EXTREMITY [None]
  - PULMONARY EMBOLISM [None]
